FAERS Safety Report 7208097-0 (Version None)
Quarter: 2011Q1

REPORT INFORMATION
  Report Type: 
  Country: None (occurrence: None)
  Receive Date: 20110104
  Receipt Date: 20101230
  Transmission Date: 20110831
  Serious: No
  Sender: FDA-Public Use
  Company Number: US-PFIZER INC-2010182176

PATIENT
  Sex: Male
  Weight: 86 kg

DRUGS (4)
  1. GLUCOSAMINE [Concomitant]
     Dosage: UNK
  2. LIPITOR [Suspect]
     Indication: BLOOD CHOLESTEROL INCREASED
     Dosage: 20 MG, 1X/DAY
     Route: 048
     Dates: start: 20090601
  3. CENTRUM SILVER [Concomitant]
     Dosage: UNK
  4. FISH OIL [Concomitant]
     Dosage: UNK

REACTIONS (1)
  - RESTLESS LEGS SYNDROME [None]
